FAERS Safety Report 13445642 (Version 1)
Quarter: 2017Q2

REPORT INFORMATION
  Report Type: Spontaneous
  Country: US (occurrence: US)
  Receive Date: 20170415
  Receipt Date: 20170415
  Transmission Date: 20170830
  Serious: Yes (Hospitalization)
  Sender: FDA-Public Use
  Company Number: US-JNJFOC-20170414504

PATIENT
  Sex: Male

DRUGS (1)
  1. DIPHENHYDRAMINE HYDROCHLORIDE. [Suspect]
     Active Substance: DIPHENHYDRAMINE HYDROCHLORIDE
     Indication: PRODUCT USED FOR UNKNOWN INDICATION
     Route: 048
     Dates: start: 19470608

REACTIONS (10)
  - Coma [Recovered/Resolved]
  - Somnolence [Unknown]
  - Petit mal epilepsy [Unknown]
  - Pupil fixed [Unknown]
  - Suicide attempt [Unknown]
  - Intentional overdose [Unknown]
  - Hypertension [Unknown]
  - Thinking abnormal [Recovered/Resolved]
  - Toxic neuropathy [Recovered/Resolved with Sequelae]
  - Agitation [Unknown]

NARRATIVE: CASE EVENT DATE: 194706
